FAERS Safety Report 8717713 (Version 2)
Quarter: 2013Q1

REPORT INFORMATION
  Report Type: Spontaneous
  Country: ES (occurrence: ES)
  Receive Date: 20120810
  Receipt Date: 20130308
  Transmission Date: 20140127
  Serious: Yes (Other)
  Sender: FDA-Public Use
  Company Number: ES-ELI_LILLY_AND_COMPANY-ES201208000945

PATIENT
  Age: 70 None
  Sex: Female
  Weight: 74 kg

DRUGS (6)
  1. FORSTEO [Suspect]
     Indication: OSTEOPOROSIS
     Dosage: 20 UG, QD
     Route: 058
     Dates: start: 20100916
  2. MICARDIS [Concomitant]
     Indication: HYPERTENSION
     Dosage: 80 MG, QD
  3. TRANXILIUM [Concomitant]
     Indication: DEPRESSION
     Dosage: 15 MG, BID
  4. LORAZEPAM [Concomitant]
     Indication: DEPRESSION
     Dosage: 2 MG, QD
  5. ARCOXIA [Concomitant]
     Indication: PAIN
     Dosage: 60 MG, QD
  6. CALCIUM CARBONATE W/COLECALCIFEROL [Concomitant]
     Indication: OSTEOPOROSIS
     Dosage: UNK, BID

REACTIONS (5)
  - Road traffic accident [Not Recovered/Not Resolved]
  - Limb injury [Not Recovered/Not Resolved]
  - Joint injury [Not Recovered/Not Resolved]
  - Neck injury [Not Recovered/Not Resolved]
  - Gait disturbance [Not Recovered/Not Resolved]
